FAERS Safety Report 9831992 (Version 1)
Quarter: 2014Q1

REPORT INFORMATION
  Report Type: Spontaneous
  Country: BR (occurrence: BR)
  Receive Date: 20140121
  Receipt Date: 20140121
  Transmission Date: 20141002
  Serious: Yes (Hospitalization, Other)
  Sender: FDA-Public Use
  Company Number: BR-SA-2014SA006068

PATIENT
  Sex: Male

DRUGS (2)
  1. LANTUS [Suspect]
     Indication: DIABETES MELLITUS
     Route: 058
  2. INSULIN PEN NOS [Concomitant]
     Indication: DEVICE THERAPY
     Route: 058

REACTIONS (4)
  - Anaemia [Recovered/Resolved]
  - Pneumonia [Not Recovered/Not Resolved]
  - Renal failure [Not Recovered/Not Resolved]
  - Sinusitis [Not Recovered/Not Resolved]
